FAERS Safety Report 26056089 (Version 2)
Quarter: 2025Q4

REPORT INFORMATION
  Report Type: Report from Study
  Country: US (occurrence: US)
  Receive Date: 20251118
  Receipt Date: 20251215
  Transmission Date: 20260119
  Serious: No
  Sender: BOEHRINGER INGELHEIM
  Company Number: US-BoehringerIngelheim-2025-BI-108379

PATIENT
  Age: 67 Year
  Sex: Female

DRUGS (1)
  1. JASCAYD [Suspect]
     Active Substance: NERANDOMILAST
     Indication: Idiopathic pulmonary fibrosis
     Dates: start: 20251112

REACTIONS (8)
  - Cough [Recovered/Resolved]
  - Diarrhoea [Recovered/Resolved]
  - Back pain [Unknown]
  - Palpitations [Unknown]
  - Sleep apnoea syndrome [Unknown]
  - Rhinorrhoea [Not Recovered/Not Resolved]
  - Headache [Not Recovered/Not Resolved]
  - Osteoporosis [Unknown]

NARRATIVE: CASE EVENT DATE: 20251101
